FAERS Safety Report 6127266-4 (Version None)
Quarter: 2009Q1

REPORT INFORMATION
  Report Type: 
  Country: None (occurrence: None)
  Receive Date: 20090319
  Receipt Date: 20090305
  Transmission Date: 20090719
  Serious: Yes (Hospitalization)
  Sender: FDA-Public Use
  Company Number: 02100-JPN-07-0656

PATIENT
  Age: 83 Year
  Sex: Female

DRUGS (8)
  1. PLAVIX [Suspect]
     Indication: CEREBROVASCULAR ACCIDENT
     Dosage: 75 MG, DAILY DOSE ORAL
     Route: 048
     Dates: start: 20061228, end: 20070727
  2. PLETAL [Suspect]
     Indication: CEREBRAL INFARCTION
     Dosage: 200 MG, DAILY DOSE ORAL
     Route: 048
     Dates: start: 20070727, end: 20070909
  3. PLETAL [Suspect]
     Indication: CEREBRAL INFARCTION
     Dosage: 200 MG, DAILY DOSE ORAL
     Route: 048
     Dates: start: 20071011
  4. ASPIRIN [Concomitant]
  5. AMLODIPINE BESYLATE [Concomitant]
  6. CARVEDILOL (CARVEDILOL) UNKNOWN [Concomitant]
  7. ATORVASTATIN CALCIUM (ATORVASTATIN CALCIUM) UNKNOWN [Concomitant]
  8. HYDROCHLOROTHIAZIDE [Concomitant]

REACTIONS (2)
  - ABDOMINAL PAIN [None]
  - CHOLELITHOTOMY [None]
